FAERS Safety Report 8530822-7 (Version None)
Quarter: 2012Q3

REPORT INFORMATION
  Report Type: 
  Country: None (occurrence: None)
  Receive Date: 20120723
  Receipt Date: 20120711
  Transmission Date: 20120928
  Serious: Yes (Death, Hospitalization)
  Sender: FDA-Public Use
  Company Number: FR-PFIZER INC-2012166212

PATIENT
  Age: 54 Year
  Sex: Male

DRUGS (1)
  1. SUTENT [Suspect]
     Indication: CLEAR CELL SARCOMA OF THE KIDNEY
     Dosage: UNK
     Route: 048
     Dates: start: 20120117, end: 20120615

REACTIONS (4)
  - CONFUSIONAL STATE [None]
  - CLEAR CELL SARCOMA OF THE KIDNEY [None]
  - DISEASE PROGRESSION [None]
  - HALLUCINATION [None]
